FAERS Safety Report 10702694 (Version 2)
Quarter: 2015Q3

REPORT INFORMATION
  Report Type: Spontaneous
  Country: US (occurrence: US)
  Receive Date: 20150109
  Receipt Date: 20150921
  Transmission Date: 20151125
  Serious: No
  Sender: FDA-Public Use
  Company Number: US-GLAXOSMITHKLINE-US2014GSK044794

PATIENT
  Age: 35 Year
  Sex: Female

DRUGS (2)
  1. LAMICTAL [Suspect]
     Active Substance: LAMOTRIGINE
     Indication: AFFECTIVE DISORDER
     Dosage: UNK
  2. LAMICTAL [Suspect]
     Active Substance: LAMOTRIGINE
     Indication: BIPOLAR DISORDER
     Dosage: UNK
     Dates: start: 2012

REACTIONS (3)
  - Pyrexia [Unknown]
  - Bronchitis [Unknown]
  - Oxygen saturation decreased [Unknown]

NARRATIVE: CASE EVENT DATE: 201412
